FAERS Safety Report 9473559 (Version 1)
Quarter: 2013Q3

REPORT INFORMATION
  Report Type: Spontaneous
  Country: US (occurrence: US)
  Receive Date: 20130823
  Receipt Date: 20130823
  Transmission Date: 20140515
  Serious: Yes (Hospitalization)
  Sender: FDA-Public Use
  Company Number: US-BAYER-2013-101923

PATIENT
  Age: 37 Year
  Sex: Female

DRUGS (3)
  1. YASMIN [Suspect]
  2. YAZ [Suspect]
  3. OCELLA [Suspect]

REACTIONS (1)
  - Pulmonary embolism [Recovering/Resolving]
